FAERS Safety Report 9818528 (Version 3)
Quarter: 2014Q2

REPORT INFORMATION
  Report Type: Other
  Country: US (occurrence: US)
  Receive Date: 20140115
  Receipt Date: 20140630
  Transmission Date: 20141212
  Serious: Yes (Hospitalization)
  Sender: FDA-Public Use
  Company Number: US-ACORDA-ACO_101147_2014

PATIENT
  Age: 57 Year
  Sex: Female

DRUGS (3)
  1. AMPYRA [Suspect]
     Indication: MULTIPLE SCLEROSIS
     Dosage: 10 MG, BID
     Route: 065
     Dates: end: 201312
  2. AMPYRA [Suspect]
     Indication: BALANCE DISORDER
  3. AMPYRA [Suspect]
     Indication: GAIT DISTURBANCE

REACTIONS (4)
  - Infection [Unknown]
  - Memory impairment [Recovered/Resolved]
  - Cognitive disorder [Recovered/Resolved]
  - Anxiety [Recovered/Resolved]
